FAERS Safety Report 6506235-6 (Version None)
Quarter: 2009Q4

REPORT INFORMATION
  Report Type: 
  Country: None (occurrence: None)
  Receive Date: 20091218
  Receipt Date: 20091211
  Transmission Date: 20100525
  Serious: Yes (Other)
  Sender: FDA-Public Use
  Company Number: PHHY2009FR55329

PATIENT
  Age: 52 Year
  Sex: Male

DRUGS (6)
  1. NEORAL [Suspect]
     Indication: STEM CELL TRANSPLANT
     Dosage: 1 MG/KG/DAY
  2. NEORAL [Suspect]
     Dosage: 0.75 MG/KG/DAY
  3. CELLCEPT [Concomitant]
  4. ESOMEPRAZOLE [Concomitant]
  5. PRIMPERAN TAB [Concomitant]
  6. TRAMADOL HCL [Concomitant]

REACTIONS (1)
  - IIIRD NERVE PARALYSIS [None]
